FAERS Safety Report 4472877-5 (Version None)
Quarter: 2004Q4

REPORT INFORMATION
  Report Type: 
  Country: None (occurrence: None)
  Receive Date: 20041012
  Receipt Date: 20041012
  Transmission Date: 20050328
  Serious: Yes (Hospitalization, Other)
  Sender: FDA-Public Use
  Company Number: None

PATIENT
  Age: 60 Year
  Sex: Female

DRUGS (2)
  1. ENOXAPARIN 100 MG Q12H [Suspect]
     Dosage: 100 MG Q 12H
  2. WARFARIN 6 MG QD [Suspect]
     Dosage: 6 MG QD

REACTIONS (2)
  - HAEMORRHAGE [None]
  - MUSCLE HAEMORRHAGE [None]
